FAERS Safety Report 13863275 (Version 2)
Quarter: 2017Q3

REPORT INFORMATION
  Report Type: Report from Study
  Country: None (occurrence: IT)
  Receive Date: 20170814
  Receipt Date: 20170929
  Transmission Date: 20171127
  Serious: Yes (Hospitalization)
  Sender: FDA-Public Use
  Company Number: IT-ABBVIE-17K-083-2069248-00

PATIENT
  Age: 71 Year
  Sex: Female

DRUGS (1)
  1. DUODOPA [Suspect]
     Active Substance: CARBIDOPA\LEVODOPA
     Indication: PARKINSON^S DISEASE
     Dosage: MD 8+3?CR 2.7?ED 1.5
     Route: 050
     Dates: start: 20170130, end: 20170928

REACTIONS (2)
  - Neuropathy peripheral [Unknown]
  - Medical induction of coma [Unknown]

NARRATIVE: CASE EVENT DATE: 201707
